FAERS Safety Report 10960060 (Version 1)
Quarter: 2015Q1

REPORT INFORMATION
  Report Type: Spontaneous
  Country: US (occurrence: US)
  Receive Date: 20150327
  Receipt Date: 20150327
  Transmission Date: 20150721
  Serious: No
  Sender: FDA-Public Use
  Company Number: US-ASTRAZENECA-2015SE28690

PATIENT
  Age: 78 Year
  Sex: Male
  Weight: 96 kg

DRUGS (5)
  1. OMEPRAZOLE. [Suspect]
     Active Substance: OMEPRAZOLE
     Route: 048
  2. FISH OIL [Concomitant]
     Active Substance: FISH OIL
  3. LYCOPENE [Concomitant]
     Active Substance: LYCOPENE
  4. ASPIRIN. [Concomitant]
     Active Substance: ASPIRIN
  5. PANTOPRAZOLE [Suspect]
     Active Substance: PANTOPRAZOLE SODIUM
     Indication: GASTROOESOPHAGEAL REFLUX DISEASE
     Dosage: NON AZ
     Route: 065
     Dates: start: 20150128

REACTIONS (2)
  - Blood glucose increased [Not Recovered/Not Resolved]
  - Abdominal pain upper [Unknown]

NARRATIVE: CASE EVENT DATE: 201501
